FAERS Safety Report 5017617-6 (Version None)
Quarter: 2006Q2

REPORT INFORMATION
  Report Type: 
  Country: None (occurrence: None)
  Receive Date: 20060604
  Receipt Date: 20060421
  Transmission Date: 20061013
  Serious: Yes (Other)
  Sender: FDA-Public Use
  Company Number: GB-ABBOTT-06P-167-0331440-00

PATIENT
  Age: 57 Year
  Sex: Female

DRUGS (12)
  1. VALPROATE SODIUM [Suspect]
     Indication: CONVULSION
     Route: 065
     Dates: start: 20031101
  2. LAMOTRIGINE [Interacting]
     Indication: CONVULSION
     Route: 065
     Dates: start: 20040219, end: 20040301
  3. LAMOTRIGINE [Interacting]
     Route: 065
     Dates: start: 20040301, end: 20040401
  4. LAMOTRIGINE [Interacting]
     Route: 065
     Dates: start: 20040419, end: 20040426
  5. PHENYTOIN [Concomitant]
     Indication: CONVULSION
     Route: 065
     Dates: start: 20031101
  6. PHENYTOIN [Concomitant]
     Dates: end: 20040201
  7. PHENYTOIN [Concomitant]
     Dosage: WITHDRAWN BY 30 MG WEEKLY
     Dates: start: 20040219, end: 20040401
  8. CLOBAZAM [Concomitant]
     Indication: CONVULSION
     Route: 065
     Dates: start: 20030101
  9. BACLOFEN [Concomitant]
     Indication: MUSCLE SPASTICITY
     Route: 065
     Dates: start: 20031101, end: 20040219
  10. PARACETAMOL [Concomitant]
     Indication: DRUG USE FOR UNKNOWN INDICATION
     Route: 065
  11. LOPERAMIDE [Concomitant]
     Indication: DRUG USE FOR UNKNOWN INDICATION
     Route: 065
  12. EMOLLIENTS AND PROTECTIVES [Concomitant]
     Indication: ECZEMA
     Dosage: NOT REPORTED

REACTIONS (3)
  - DRUG INTERACTION [None]
  - INTERSTITIAL LUNG DISEASE [None]
  - TACHYCARDIA [None]
